FAERS Safety Report 7098590-6 (Version None)
Quarter: 2010Q4

REPORT INFORMATION
  Report Type: 
  Country: None (occurrence: None)
  Receive Date: 20101112
  Receipt Date: 20090811
  Transmission Date: 20110411
  Serious: No
  Sender: FDA-Public Use
  Company Number: US-KINGPHARMUSA00001-K200900978

PATIENT
  Sex: Female
  Weight: 56.689 kg

DRUGS (1)
  1. SKELAXIN [Suspect]
     Indication: INTERVERTEBRAL DISC PROTRUSION
     Dosage: 800 MG, BID OR TID
     Route: 048
     Dates: start: 20090809

REACTIONS (1)
  - BONE PAIN [None]
